FAERS Safety Report 4641688-X (Version None)
Quarter: 2005Q2

REPORT INFORMATION
  Report Type: 
  Country: None (occurrence: None)
  Receive Date: 20050421
  Receipt Date: 20050408
  Transmission Date: 20051028
  Serious: Yes (Death)
  Sender: FDA-Public Use
  Company Number: 200510730BWH

PATIENT

DRUGS (2)
  1. TRASYLOL [Suspect]
     Indication: CORONARY ARTERY SURGERY
  2. REVERSAL OF HEPARIN (PROTAMINE) [Suspect]

REACTIONS (2)
  - CORONARY ARTERY THROMBOSIS [None]
  - HYPERCOAGULATION [None]
